FAERS Safety Report 13209307 (Version 1)
Quarter: 2017Q1

REPORT INFORMATION
  Report Type: Spontaneous
  Country: DK (occurrence: DK)
  Receive Date: 20170209
  Receipt Date: 20170209
  Transmission Date: 20170428
  Serious: Yes (Life-Threatening, Hospitalization)
  Sender: FDA-Public Use
  Company Number: PHHY2017DK016221

PATIENT
  Age: 22 Year
  Sex: Female

DRUGS (2)
  1. ABILIFY [Suspect]
     Active Substance: ARIPIPRAZOLE
     Indication: SCHIZOPHRENIA
     Dosage: STRENGTH: 10 MG
     Route: 048
     Dates: start: 20160815, end: 20161221
  2. SERTRALINE [Suspect]
     Active Substance: SERTRALINE HYDROCHLORIDE
     Indication: ANXIETY
     Dosage: STRENGTH: 100MG
     Route: 048
     Dates: start: 20160906, end: 20161221

REACTIONS (9)
  - Lactic acidosis [Unknown]
  - Myocardial infarction [Unknown]
  - Neuroleptic malignant syndrome [Not Recovered/Not Resolved]
  - Renal failure [Unknown]
  - Respiratory failure [Not Recovered/Not Resolved]
  - Rhabdomyolysis [Unknown]
  - Pyrexia [Unknown]
  - Hyperkalaemia [Unknown]
  - Depressed level of consciousness [Unknown]

NARRATIVE: CASE EVENT DATE: 20161219
